FAERS Safety Report 17288242 (Version 3)
Quarter: 2020Q1

REPORT INFORMATION
  Report Type: Report from Study
  Country: CA (occurrence: CA)
  Receive Date: 20200120
  Receipt Date: 20200213
  Transmission Date: 20200409
  Serious: Yes (Other)
  Sender: FDA-Public Use
  Company Number: CA-ROCHE-2462362

PATIENT
  Sex: Male

DRUGS (6)
  1. BENADRYL [Concomitant]
     Active Substance: DIPHENHYDRAMINE HYDROCHLORIDE
     Indication: PREMEDICATION
     Route: 048
     Dates: start: 20190710
  2. SOLU-MEDROL [Concomitant]
     Active Substance: METHYLPREDNISOLONE SODIUM SUCCINATE
     Indication: PREMEDICATION
     Route: 042
     Dates: start: 20190710
  3. FOLIC ACID. [Concomitant]
     Active Substance: FOLIC ACID
     Indication: PRODUCT USED FOR UNKNOWN INDICATION
     Route: 065
  4. TYLENOL [Concomitant]
     Active Substance: ACETAMINOPHEN
     Indication: PREMEDICATION
     Route: 048
     Dates: start: 20190710
  5. RITUXAN [Suspect]
     Active Substance: RITUXIMAB
     Indication: RHEUMATOID ARTHRITIS
     Dosage: ONGOING
     Route: 042
     Dates: start: 20190710
  6. METHOTREXATE. [Concomitant]
     Active Substance: METHOTREXATE
     Indication: PRODUCT USED FOR UNKNOWN INDICATION
     Dosage: DRUG DOSE FIRST ADMINISTERED IS 2.5 MG MILLIGRAM(S)
     Route: 065

REACTIONS (34)
  - Arthropathy [Unknown]
  - Headache [Not Recovered/Not Resolved]
  - Depression [Recovering/Resolving]
  - Nasopharyngitis [Not Recovered/Not Resolved]
  - Abnormal behaviour [Unknown]
  - Immunodeficiency [Unknown]
  - Arthralgia [Unknown]
  - Upper respiratory tract congestion [Not Recovered/Not Resolved]
  - Sleep disorder [Recovering/Resolving]
  - Tinnitus [Not Recovered/Not Resolved]
  - Ill-defined disorder [Unknown]
  - Pyrexia [Unknown]
  - Rash [Unknown]
  - Fatigue [Unknown]
  - Heart rate increased [Unknown]
  - Peripheral swelling [Recovering/Resolving]
  - Weight decreased [Unknown]
  - Anxiety [Unknown]
  - Therapy non-responder [Unknown]
  - Heart rate irregular [Unknown]
  - Cataract [Not Recovered/Not Resolved]
  - Suicidal ideation [Not Recovered/Not Resolved]
  - Stress [Unknown]
  - Hallucination [Unknown]
  - Inflammation [Unknown]
  - Bone pain [Unknown]
  - Acne [Recovered/Resolved]
  - Arthrodesis [Unknown]
  - Eye disorder [Unknown]
  - Feeling abnormal [Unknown]
  - Physical assault [Unknown]
  - Tooth disorder [Unknown]
  - Sleep deficit [Unknown]
  - Tinnitus [Unknown]
